FAERS Safety Report 25421997 (Version 2)
Quarter: 2025Q3

REPORT INFORMATION
  Report Type: Spontaneous
  Country: US (occurrence: US)
  Receive Date: 20250611
  Receipt Date: 20250704
  Transmission Date: 20251020
  Serious: No
  Sender: TOLMAR
  Company Number: CID000000000000434

PATIENT

DRUGS (2)
  1. FENSOLVI [Suspect]
     Active Substance: LEUPROLIDE ACETATE
     Indication: Product used for unknown indication
     Route: 065
  2. DEVICE [Suspect]
     Active Substance: DEVICE
     Indication: Product used for unknown indication

REACTIONS (2)
  - Product administration error [Unknown]
  - Device issue [Unknown]
